FAERS Safety Report 8674229 (Version 3)
Quarter: 2014Q1

REPORT INFORMATION
  Report Type: Report from Study
  Country: US (occurrence: US)
  Receive Date: 20120719
  Receipt Date: 20140116
  Transmission Date: 20141002
  Serious: Yes (Hospitalization)
  Sender: FDA-Public Use
  Company Number: US-GLAXOSMITHKLINE-A0984951A

PATIENT
  Age: 49 Year
  Sex: Female
  Weight: 88.2 kg

DRUGS (20)
  1. PAZOPANIB [Suspect]
     Indication: COLON CANCER
     Dosage: 800MG PER DAY
     Route: 048
     Dates: start: 20120626
  2. INVESTIGATIONAL DRUG [Suspect]
     Indication: COLON CANCER
     Dosage: 950.4MG TWO TIMES PER WEEK
     Route: 042
     Dates: start: 20120626
  3. NADOLOL [Concomitant]
  4. ASPIRIN [Concomitant]
  5. GABAPENTIN [Concomitant]
  6. LIPITOR [Concomitant]
  7. TRICOR [Concomitant]
  8. IMODIUM [Concomitant]
  9. SUDAFED [Concomitant]
  10. LOMOTIL [Concomitant]
  11. LOTREL [Concomitant]
  12. NEXIUM [Concomitant]
  13. GLIPIZIDE [Concomitant]
  14. NOVOLOG [Concomitant]
  15. INSULIN [Concomitant]
  16. LANTUS [Concomitant]
  17. L-LYSINE [Concomitant]
  18. TYLENOL [Concomitant]
  19. MORPHINE [Concomitant]
  20. PERCOCET [Concomitant]

REACTIONS (2)
  - Mucosal inflammation [Recovered/Resolved]
  - Odynophagia [Recovering/Resolving]
